FAERS Safety Report 24594273 (Version 4)
Quarter: 2025Q1

REPORT INFORMATION
  Report Type: Spontaneous
  Country: JP (occurrence: JP)
  Receive Date: 20241108
  Receipt Date: 20250207
  Transmission Date: 20250409
  Serious: Yes (Death, Hospitalization, Other)
  Sender: BAYER HEALTHCARE PHARMACEUTICALS INC.
  Company Number: JP-BAYER-2024A159617

PATIENT
  Age: 73 Year
  Sex: Male
  Weight: 51 kg

DRUGS (10)
  1. KERENDIA [Suspect]
     Active Substance: FINERENONE
     Indication: Type 2 diabetes mellitus
     Dosage: 10 MG, QD
     Route: 048
     Dates: start: 20240412, end: 20241006
  2. KERENDIA [Suspect]
     Active Substance: FINERENONE
     Indication: Chronic kidney disease
  3. KERENDIA [Suspect]
     Active Substance: FINERENONE
     Indication: Renal impairment
  4. CLOPIDOGREL [Suspect]
     Active Substance: CLOPIDOGREL BISULFATE
     Dosage: DAILY DOSE 75 MG
     Dates: start: 20131219, end: 20241006
  5. PREDNISOLONE [Concomitant]
     Active Substance: PREDNISOLONE
  6. PREDNISOLONE [Concomitant]
     Active Substance: PREDNISOLONE
     Dosage: DOSE DECREASED TO DAILY DOSE 0.5 MG
     Dates: start: 20240802, end: 20241006
  7. ESOMEPRAZOLE [Concomitant]
     Active Substance: ESOMEPRAZOLE
     Dosage: DAILY DOSE 20 MG
     Dates: start: 20160217, end: 20241006
  8. ALFACALCIDOL [Concomitant]
     Active Substance: ALFACALCIDOL
     Dosage: DAILY DOSE .25 ?G
     Dates: start: 20210714, end: 20241006
  9. PITAVASTATIN CALCIUM [Concomitant]
     Active Substance: PITAVASTATIN CALCIUM
     Dosage: DAILY DOSE 2 MG
     Dates: start: 20160217, end: 20241006
  10. JARDIANCE [Concomitant]
     Active Substance: EMPAGLIFLOZIN
     Dosage: DAILY DOSE 10 MG
     Dates: start: 20210726, end: 20241006

REACTIONS (5)
  - Subdural haematoma [Fatal]
  - Traumatic subarachnoid haemorrhage [Fatal]
  - Cardio-respiratory arrest [Fatal]
  - Heart rate decreased [None]
  - Respiratory disorder [None]

NARRATIVE: CASE EVENT DATE: 20241006
